FAERS Safety Report 17081751 (Version 1)
Quarter: 2019Q4

REPORT INFORMATION
  Report Type: Spontaneous
  Country: US (occurrence: US)
  Receive Date: 20191029
  Receipt Date: 20191029
  Transmission Date: 20200122
  Serious: No
  Sender: FDA-Public Use
  Company Number: None

PATIENT
  Sex: Male
  Weight: 94.6 kg

DRUGS (6)
  1. CYTARABINE (63878) [Suspect]
     Active Substance: CYTARABINE
     Dates: end: 20190915
  2. DEXAMETHASONE. [Suspect]
     Active Substance: DEXAMETHASONE
     Dates: end: 20190915
  3. METHOTREXATE. [Suspect]
     Active Substance: METHOTREXATE
     Dates: end: 20191008
  4. VINCRISTINE SULFATE. [Concomitant]
     Active Substance: VINCRISTINE SULFATE
  5. DAUNORUBICIN [Suspect]
     Active Substance: DAUNORUBICIN
     Dates: end: 20190916
  6. PEG-L-ASPARAGINASE [Suspect]
     Active Substance: PEGASPARGASE

REACTIONS (2)
  - Megakaryocytes increased [None]
  - Sideroblastic anaemia [None]

NARRATIVE: CASE EVENT DATE: 20190930
